FAERS Safety Report 7542301-4 (Version None)
Quarter: 2011Q2

REPORT INFORMATION
  Report Type: 
  Country: None (occurrence: None)
  Receive Date: 20110524
  Receipt Date: 20110322
  Transmission Date: 20111010
  Serious: No
  Sender: FDA-Public Use
  Company Number: 026942

PATIENT
  Sex: Female
  Weight: 77.1 kg

DRUGS (3)
  1. CIMZIA [Suspect]
     Indication: CROHN'S DISEASE
     Dosage: (SUBCUTANEOUS), (400 MG 1X/MONTH, 200MG X 2 SHOTS SUBCUTANEOUS), (SUBCUTANEOUS)
     Route: 058
     Dates: start: 20110201, end: 20110201
  2. CIMZIA [Suspect]
     Indication: CROHN'S DISEASE
     Dosage: (SUBCUTANEOUS), (400 MG 1X/MONTH, 200MG X 2 SHOTS SUBCUTANEOUS), (SUBCUTANEOUS)
     Route: 058
     Dates: start: 20101212
  3. CIPRO [Concomitant]

REACTIONS (3)
  - INFECTION [None]
  - HAIR DISORDER [None]
  - ANAL FISTULA [None]
